FAERS Safety Report 6159690-8 (Version None)
Quarter: 2009Q2

REPORT INFORMATION
  Report Type: 
  Country: None (occurrence: None)
  Receive Date: 20090420
  Receipt Date: 20090406
  Transmission Date: 20091009
  Serious: Yes (Other)
  Sender: FDA-Public Use
  Company Number: DE-CELGENEUS-062-50794-09031142

PATIENT
  Sex: Female
  Weight: 45.8 kg

DRUGS (3)
  1. VIDAZA [Suspect]
     Route: 058
     Dates: start: 20090105, end: 20090206
  2. LEVOTHYROXINE SODIUM [Concomitant]
     Route: 065
  3. MCP HEXAL [Concomitant]
     Indication: NAUSEA
     Dosage: 4 X30 DROPS
     Route: 065
     Dates: start: 20081117

REACTIONS (2)
  - CONGESTIVE CARDIOMYOPATHY [None]
  - LEFT VENTRICULAR FAILURE [None]
